FAERS Safety Report 9319900 (Version 1)
Quarter: 2013Q2

REPORT INFORMATION
  Report Type: Spontaneous
  Country: US (occurrence: US)
  Receive Date: 20130530
  Receipt Date: 20130530
  Transmission Date: 20140414
  Serious: No
  Sender: FDA-Public Use
  Company Number: US-UPSHER-SMITH LABORATORIES, INC.-12001585

PATIENT
  Age: 64 Year
  Sex: Female

DRUGS (7)
  1. POTASSIUM CHLORIDE [Suspect]
     Indication: BLOOD POTASSIUM DECREASED
     Dosage: 20 MEQ, BID
     Route: 048
  2. POTASSIUM CHLORIDE [Suspect]
     Dosage: 60 MEQ, QD
     Route: 048
  3. POTASSIUM CHLORIDE [Suspect]
     Dosage: 40 MEQ, BID
     Route: 048
     Dates: end: 201203
  4. BONIVA [Concomitant]
     Dosage: UNK
  5. HYDROCHLOROTHIAZIDE [Concomitant]
     Dosage: UNK
  6. RESTASIS [Concomitant]
     Dosage: UNK
  7. LOVAZA [Concomitant]
     Dosage: UNK

REACTIONS (1)
  - Drug ineffective [Unknown]
